FAERS Safety Report 20751267 (Version 2)
Quarter: 2022Q4

REPORT INFORMATION
  Report Type: Spontaneous
  Country: CA (occurrence: CA)
  Receive Date: 20220426
  Receipt Date: 20221207
  Transmission Date: 20230113
  Serious: Yes (Life-Threatening, Hospitalization)
  Sender: FDA-Public Use
  Company Number: CA-TEVA-2022-CA-2028919

PATIENT
  Age: 10 Year
  Sex: Male
  Weight: 29 kg

DRUGS (8)
  1. CISPLATIN [Suspect]
     Active Substance: CISPLATIN
     Indication: Medulloblastoma
     Route: 041
  2. VINCRISTINE SULFATE [Suspect]
     Active Substance: VINCRISTINE SULFATE
     Indication: Medulloblastoma
     Route: 041
  3. CYCLOPHOSPHAMIDE [Suspect]
     Active Substance: CYCLOPHOSPHAMIDE
     Indication: Medulloblastoma
     Route: 041
  4. HYDROCORTISONE [Concomitant]
     Active Substance: HYDROCORTISONE
  5. MAGNESIUM [Concomitant]
     Active Substance: MAGNESIUM
  6. MESNA [Concomitant]
     Active Substance: MESNA
  7. ONDANSETRON [Concomitant]
     Active Substance: ONDANSETRON
  8. POLYETHYLENE GLYCOL [Concomitant]
     Active Substance: POLYETHYLENE GLYCOL

REACTIONS (3)
  - Febrile neutropenia [Recovered/Resolved]
  - Bacillus test positive [Recovered/Resolved]
  - Staphylococcus test positive [Recovered/Resolved]
